FAERS Safety Report 19750149 (Version 1)
Quarter: 2021Q3

REPORT INFORMATION
  Report Type: Spontaneous
  Country: DE (occurrence: DE)
  Receive Date: 20210826
  Receipt Date: 20210826
  Transmission Date: 20211014
  Serious: Yes (Hospitalization, Other)
  Sender: FDA-Public Use
  Company Number: NVSC2021DE188559

PATIENT
  Age: 78 Year
  Sex: Male

DRUGS (4)
  1. BENEPALI [Suspect]
     Active Substance: ETANERCEPT
     Indication: RHEUMATOID ARTHRITIS
     Dosage: 50 MG, 14D
     Route: 065
     Dates: start: 201612, end: 202009
  2. METHOTREXATE. [Suspect]
     Active Substance: METHOTREXATE
     Dosage: 15 MG, QW
     Route: 065
     Dates: end: 202009
  3. METHOTREXATE. [Suspect]
     Active Substance: METHOTREXATE
     Indication: PRODUCT USED FOR UNKNOWN INDICATION
     Dosage: 7.5 MG
     Route: 065
  4. ENBREL [Concomitant]
     Active Substance: ETANERCEPT
     Indication: PRODUCT USED FOR UNKNOWN INDICATION
     Dosage: 50 MG
     Route: 065
     Dates: start: 201302, end: 201612

REACTIONS (15)
  - Pseudomonas infection [Unknown]
  - Infectious pleural effusion [Unknown]
  - Sarcoma [Unknown]
  - Gangrene [Not Recovered/Not Resolved]
  - Sepsis [Not Recovered/Not Resolved]
  - Enterococcal infection [Unknown]
  - Gastrooesophageal reflux disease [Unknown]
  - Product use issue [Unknown]
  - Rib fracture [Unknown]
  - Gastric ulcer [Unknown]
  - Femur fracture [Unknown]
  - Klebsiella infection [Unknown]
  - Pleural effusion [Not Recovered/Not Resolved]
  - Upper gastrointestinal haemorrhage [Unknown]
  - Traumatic haemothorax [Unknown]

NARRATIVE: CASE EVENT DATE: 20200821
